FAERS Safety Report 4425102-5 (Version None)
Quarter: 2004Q3

REPORT INFORMATION
  Report Type: 
  Country: None (occurrence: None)
  Receive Date: 20040813
  Receipt Date: 20040803
  Transmission Date: 20050211
  Serious: Yes (Other)
  Sender: FDA-Public Use
  Company Number: GB-JNJFOC-20040801091

PATIENT
  Age: 23 Year
  Sex: Male

DRUGS (4)
  1. TOPAMAX [Suspect]
     Indication: EPILEPSY
     Route: 065
  2. CIPRAMIL [Concomitant]
     Route: 065
  3. CARBAMAZEPINE [Concomitant]
     Route: 065
  4. BACLOFEN [Concomitant]
     Route: 065

REACTIONS (6)
  - ABASIA [None]
  - ANOREXIA [None]
  - FATIGUE [None]
  - MOOD SWINGS [None]
  - PAIN IN EXTREMITY [None]
  - WEIGHT DECREASED [None]
